FAERS Safety Report 12594203 (Version 1)
Quarter: 2016Q3

REPORT INFORMATION
  Report Type: Spontaneous
  Country: MX (occurrence: MX)
  Receive Date: 20160726
  Receipt Date: 20160726
  Transmission Date: 20161109
  Serious: Yes (Other)
  Sender: FDA-Public Use
  Company Number: MX-RECKITT BENCKISER HEALTHCARE INT LIMITED-RB-87946-2016

PATIENT
  Age: 42 Month
  Sex: Female

DRUGS (1)
  1. TEMPRA [Suspect]
     Active Substance: ACETAMINOPHEN
     Indication: PRODUCT USED FOR UNKNOWN INDICATION
     Dosage: TOOK 8 DOSE OF PRODUCT
     Route: 048
     Dates: start: 20160711

REACTIONS (2)
  - No adverse event [Unknown]
  - Accidental overdose [Unknown]

NARRATIVE: CASE EVENT DATE: 20160711
